FAERS Safety Report 8547217-2 (Version None)
Quarter: 2012Q3

REPORT INFORMATION
  Report Type: 
  Country: None (occurrence: None)
  Receive Date: 20120727
  Receipt Date: 20120307
  Transmission Date: 20120928
  Serious: No
  Sender: FDA-Public Use
  Company Number: US-ASTRAZENECA-2012SE13752

PATIENT
  Age: 35 Year
  Sex: Female
  Weight: 90.7 kg

DRUGS (5)
  1. SEROQUEL [Suspect]
     Indication: BIPOLAR DISORDER
     Route: 048
     Dates: end: 20110601
  2. AMITRYPTILLINE [Concomitant]
  3. GAPABENTIN [Concomitant]
  4. LAMICTAL [Concomitant]
  5. NEURONTIN [Concomitant]

REACTIONS (11)
  - MENTAL DISORDER [None]
  - DRUG DOSE OMISSION [None]
  - INSOMNIA [None]
  - BIPOLAR DISORDER [None]
  - BIPOLAR I DISORDER [None]
  - SINUSITIS [None]
  - ADVERSE EVENT [None]
  - NASAL CONGESTION [None]
  - ANXIETY [None]
  - NASOPHARYNGITIS [None]
  - DYSPHONIA [None]
